FAERS Safety Report 10442039 (Version 3)
Quarter: 2014Q3

REPORT INFORMATION
  Report Type: Spontaneous
  Country: JP (occurrence: JP)
  Receive Date: 20140909
  Receipt Date: 20140926
  Transmission Date: 20150326
  Serious: Yes (Other)
  Sender: FDA-Public Use
  Company Number: JP-KOWA-2014S1000782

PATIENT
  Age: 62 Year
  Sex: Male
  Weight: 68 kg

DRUGS (9)
  1. LIVALO [Suspect]
     Active Substance: PITAVASTATIN CALCIUM
     Indication: HYPERLIPIDAEMIA
     Route: 048
     Dates: start: 20130314, end: 20140324
  2. METGLUCO [Concomitant]
     Active Substance: METFORMIN HYDROCHLORIDE
     Indication: DIABETES MELLITUS
     Route: 048
     Dates: start: 20120510, end: 20140626
  3. NITOROL R [Concomitant]
     Indication: PRINZMETAL ANGINA
     Route: 048
     Dates: start: 20090917
  4. MYOCOR [Concomitant]
     Indication: PRINZMETAL ANGINA
     Route: 060
     Dates: start: 20120112
  5. TAKEPRON [Concomitant]
     Active Substance: LANSOPRAZOLE
     Indication: GASTROOESOPHAGEAL REFLUX DISEASE
     Route: 048
     Dates: start: 20110224
  6. MOHRUS [Concomitant]
     Active Substance: KETOPROFEN
     Indication: BACK PAIN
     Route: 003
     Dates: start: 20120705
  7. BASEN [Concomitant]
     Active Substance: VOGLIBOSE
     Indication: DIABETES MELLITUS
     Route: 048
     Dates: start: 20120209, end: 20140703
  8. BAYASPIRIN [Concomitant]
     Active Substance: ASPIRIN
     Indication: MYOCARDIAL INFARCTION
     Route: 048
     Dates: start: 20090820, end: 20140324
  9. HERBESSER [Concomitant]
     Active Substance: DILTIAZEM HYDROCHLORIDE
     Indication: PRINZMETAL ANGINA
     Route: 048
     Dates: start: 20090716

REACTIONS (3)
  - Platelet count decreased [Not Recovered/Not Resolved]
  - Pancreatic carcinoma [None]
  - Metastases to liver [None]

NARRATIVE: CASE EVENT DATE: 20131003
